FAERS Safety Report 16621462 (Version 2)
Quarter: 2019Q3

REPORT INFORMATION
  Report Type: Spontaneous
  Country: ES (occurrence: ES)
  Receive Date: 20190723
  Receipt Date: 20190814
  Transmission Date: 20191004
  Serious: Yes (Other)
  Sender: FDA-Public Use
  Company Number: PHHY2019ES065535

PATIENT
  Age: 5 Year
  Sex: Female

DRUGS (11)
  1. IOBENGUANE (131 I) [Suspect]
     Active Substance: IOBENGUANE I-131
     Dosage: 9.1 GBQ, (FIRST ADMINISTERED ACTIVITY)
     Route: 050
  2. IOBENGUANE (131 I) [Suspect]
     Active Substance: IOBENGUANE I-131
     Dosage: 8.7 GBQ, (SECOND ADMINISTERED ACTIVITY)
     Route: 050
  3. ONDANSETRON HYDROCHLORIDE. [Concomitant]
     Active Substance: ONDANSETRON HYDROCHLORIDE
     Indication: POLYURIA
  4. NORMAL SALINE [Concomitant]
     Active Substance: SODIUM CHLORIDE
     Indication: DIURETIC THERAPY
     Dosage: 2.01 PER 1.73 M2/24 H FOR 4 H BEFORE TREATMENT
     Route: 065
  5. NORMAL SALINE [Concomitant]
     Active Substance: SODIUM CHLORIDE
     Indication: NEUROBLASTOMA
     Dosage: IOBENGUANE DILUTED WITH NORMAL SODIUM CHLORIDE TO 50ML AND THEN INFUSED AS SOON AS POSSIBLE OVER
     Route: 050
  6. TOPOTECAN HYDROCHLORIDE. [Suspect]
     Active Substance: TOPOTECAN HYDROCHLORIDE
     Dosage: 0.7 MG/M2, QD  (INFUSED OVER 30 MIN BEFORE ADMINISTRATION OF 131I-MIBG)
     Route: 065
  7. POTASSIUM IODIDE. [Concomitant]
     Active Substance: POTASSIUM IODIDE
     Indication: THYROID FUNCTION TEST NORMAL
  8. TOPOTECAN HYDROCHLORIDE. [Suspect]
     Active Substance: TOPOTECAN HYDROCHLORIDE
     Indication: NEUROBLASTOMA
     Dosage: 0.7 MG/M2, QD (SECOND THERAPEUTIC ADMINISTRATION, ON DAY 15)
     Route: 065
  9. POTASSIUM IODIDE. [Concomitant]
     Active Substance: POTASSIUM IODIDE
     Indication: PROPHYLAXIS
     Dosage: UNK
     Route: 065
  10. ONDANSETRON HYDROCHLORIDE. [Concomitant]
     Active Substance: ONDANSETRON HYDROCHLORIDE
     Indication: PREMEDICATION
     Dosage: 40 ?G/KG, QD
     Route: 065
  11. IOBENGUANE (131 I) [Suspect]
     Active Substance: IOBENGUANE I-131
     Indication: NEUROBLASTOMA
     Dosage: 444 MBQ/KG (12 MCI/KG) MEASURED IN A DOSE CALIBRATOR WAS DILUTED WITH NORMAL SALINE TO 50 ML
     Route: 065

REACTIONS (3)
  - Thrombocytopenia [Unknown]
  - Product use in unapproved indication [Unknown]
  - Anaemia [Unknown]
